FAERS Safety Report 10395144 (Version 2)
Quarter: 2014Q3

REPORT INFORMATION
  Report Type: Spontaneous
  Country: US (occurrence: US)
  Receive Date: 20140820
  Receipt Date: 20140820
  Transmission Date: 20150326
  Serious: Yes (Hospitalization)
  Sender: FDA-Public Use
  Company Number: US-UNITED THERAPEUTICS-UNT-2014-005419

PATIENT
  Age: 24 Year
  Sex: Female

DRUGS (2)
  1. REMODULIN [Suspect]
     Active Substance: TREPROSTINIL
     Indication: COR PULMONALE CHRONIC
     Dosage: 0.060 ?G/KG/MIN, CONTINUING
     Route: 058
     Dates: start: 20140522
  2. LETAIRIS [Concomitant]
     Active Substance: AMBRISENTAN
     Indication: PRODUCT USED FOR UNKNOWN INDICATION

REACTIONS (14)
  - Dehydration [Recovered/Resolved]
  - Abdominal pain [Unknown]
  - Vomiting [Unknown]
  - Azotaemia [Recovered/Resolved]
  - Diarrhoea [Recovered/Resolved]
  - Thrombocytopenia [Unknown]
  - Sleep apnoea syndrome [Unknown]
  - Adverse event [Recovered/Resolved]
  - Pancreatitis acute [Recovered/Resolved]
  - Renal failure acute [Recovered/Resolved]
  - Gastroenteritis [Recovered/Resolved]
  - Obesity [Unknown]
  - Lymphadenopathy [Unknown]
  - Nausea [Unknown]

NARRATIVE: CASE EVENT DATE: 20140727
